FAERS Safety Report 15134752 (Version 2)
Quarter: 2018Q4

REPORT INFORMATION
  Report Type: Report from Study
  Country: IL (occurrence: IL)
  Receive Date: 20180712
  Receipt Date: 20181019
  Transmission Date: 20190204
  Serious: Yes (Death, Hospitalization)
  Sender: FDA-Public Use
  Company Number: IL-BAYER-2018-126609

PATIENT
  Age: 64 Year
  Sex: Female

DRUGS (2)
  1. BETAFERON [Suspect]
     Active Substance: INTERFERON BETA-1B
     Indication: MULTIPLE SCLEROSIS
     Dosage: UNK
     Dates: start: 20021127
  2. PROZAC [Concomitant]
     Active Substance: FLUOXETINE HYDROCHLORIDE
     Indication: DEPRESSION
     Dosage: UNK

REACTIONS (6)
  - Sepsis [Fatal]
  - Asthenia [None]
  - Loss of personal independence in daily activities [None]
  - Pyrexia [None]
  - Decubitus ulcer [Not Recovered/Not Resolved]
  - Bladder catheterisation [None]

NARRATIVE: CASE EVENT DATE: 20180627
